FAERS Safety Report 7653857-5 (Version None)
Quarter: 2011Q3

REPORT INFORMATION
  Report Type: 
  Country: None (occurrence: None)
  Receive Date: 20110727
  Receipt Date: 20100714
  Transmission Date: 20111222
  Serious: Yes (Hospitalization)
  Sender: FDA-Public Use
  Company Number: OMPQ-PR-1008S-0682

PATIENT
  Age: 60 Year
  Sex: Male
  Weight: 108 kg

DRUGS (3)
  1. OMNIPAQUE 140 [Suspect]
     Indication: AORTIC ANEURYSM
     Dosage: 100 ML, SINGLE DOSE
  2. VISIPAQUE [Suspect]
     Indication: AORTIC ANEURYSM
     Dosage: 360 ML, SINGLE DOSE, INTRA-ARTERIAL
     Route: 013
  3. IOVERSOL (OPTIRAY) (IOVERSOL) [Suspect]
     Indication: AORTIC ANEURYSM
     Dosage: 125 ML, SINGLE DOSE

REACTIONS (3)
  - HYPERSENSITIVITY [None]
  - BLOOD CREATININE INCREASED [None]
  - RASH PAPULAR [None]
